FAERS Safety Report 7514683-0 (Version None)
Quarter: 2011Q2

REPORT INFORMATION
  Report Type: 
  Country: None (occurrence: None)
  Receive Date: 20110601
  Receipt Date: 20101227
  Transmission Date: 20111010
  Serious: Yes (Hospitalization, Other)
  Sender: FDA-Public Use
  Company Number: US-BAYER-201012823NA

PATIENT
  Age: 42 Year
  Sex: Female
  Weight: 65.909 kg

DRUGS (11)
  1. NEXIUM [Concomitant]
     Route: 065
  2. HYOSCYAMINE [Concomitant]
     Indication: GASTROINTESTINAL DISORDER
  3. SKELAXIN [Concomitant]
  4. FIORICET [Concomitant]
  5. AMERGE [Concomitant]
     Indication: MIGRAINE
     Route: 065
     Dates: start: 20040101, end: 20080101
  6. YASMIN [Suspect]
     Indication: CONTRACEPTION
     Dosage: UNK UNK, QD
     Route: 048
     Dates: start: 20050501, end: 20080701
  7. GABAPENTIN [Concomitant]
     Indication: MIGRAINE
     Route: 065
     Dates: start: 20080101
  8. LEVBID [Concomitant]
     Dosage: 0.375 MG, UNK
  9. DROSPIRENONE AND ETHINYL ESTRADIOL [Suspect]
     Indication: CONTRACEPTION
     Route: 048
     Dates: start: 20080701, end: 20091001
  10. CRESTOR [Concomitant]
  11. HYOSCYAMINE [Concomitant]
     Indication: IRRITABLE BOWEL SYNDROME
     Route: 065
     Dates: start: 20071001, end: 20081001

REACTIONS (7)
  - NAUSEA [None]
  - VOMITING [None]
  - GALLBLADDER DISORDER [None]
  - BILIARY DYSKINESIA [None]
  - CHOLECYSTITIS CHRONIC [None]
  - ABDOMINAL PAIN UPPER [None]
  - FOOD INTOLERANCE [None]
